FAERS Safety Report 25748397 (Version 1)
Quarter: 2025Q3

REPORT INFORMATION
  Report Type: Spontaneous
  Country: CN (occurrence: CN)
  Receive Date: 20250902
  Receipt Date: 20250902
  Transmission Date: 20251021
  Serious: Yes (Other)
  Sender: AMGEN
  Company Number: CN-PFIZER INC-202500171542

PATIENT
  Age: 59 Year
  Sex: Female

DRUGS (1)
  1. ETANERCEPT [Suspect]
     Active Substance: ETANERCEPT
     Indication: Ankylosing spondylitis
     Route: 058
     Dates: start: 202508

REACTIONS (4)
  - Nausea [Recovering/Resolving]
  - Vomiting [Recovering/Resolving]
  - Back pain [Unknown]
  - Myalgia [Unknown]

NARRATIVE: CASE EVENT DATE: 20250801
